FAERS Safety Report 12620941 (Version 1)
Quarter: 2016Q3

REPORT INFORMATION
  Report Type: Spontaneous
  Country: US (occurrence: None)
  Receive Date: 20160803
  Receipt Date: 20160803
  Transmission Date: 20161109
  Serious: No
  Sender: FDA-Public Use
  Company Number: None

PATIENT
  Age: 61 Year
  Sex: Female
  Weight: 97.52 kg

DRUGS (13)
  1. VITAMIN B COMPLEX WITH C [Concomitant]
     Active Substance: ASCORBIC ACID\CALCIUM PANTOTHENATE\CYANOCOBALAMIN\NIACINAMIDE\PYRIDOXINE HYDROCHLORIDE\RIBOFLAVIN\THIAMINE MONONITRATE
  2. CALCIUM [Concomitant]
     Active Substance: CALCIUM
  3. LYSTINOPRIL [Concomitant]
  4. GLUCOSIMINE/CHONDROITION [Concomitant]
  5. FLAXSEED [Concomitant]
     Active Substance: FLAX SEED
  6. GINSING [Concomitant]
  7. VITAMIN D3 [Concomitant]
     Active Substance: CHOLECALCIFEROL
  8. LIPITOR [Concomitant]
     Active Substance: ATORVASTATIN CALCIUM
  9. EFFIENT [Suspect]
     Active Substance: PRASUGREL HYDROCHLORIDE
     Indication: STENT PLACEMENT
     Route: 048
     Dates: start: 20160630, end: 20160707
  10. APPLE CIDAR VINIGAR [Concomitant]
  11. METFORMIN [Concomitant]
     Active Substance: METFORMIN HYDROCHLORIDE
  12. MULTI-VIT [Concomitant]
     Active Substance: VITAMINS
  13. GARLIC. [Concomitant]
     Active Substance: GARLIC

REACTIONS (1)
  - Rash [None]

NARRATIVE: CASE EVENT DATE: 20160707
